FAERS Safety Report 4420580-X (Version None)
Quarter: 2004Q3

REPORT INFORMATION
  Report Type: 
  Country: None (occurrence: None)
  Receive Date: 20040809
  Receipt Date: 20040402
  Transmission Date: 20050211
  Serious: No
  Sender: FDA-Public Use
  Company Number: US-GLAXOSMITHKLINE-A0505701A

PATIENT
  Age: 58 Year
  Sex: Female

DRUGS (1)
  1. PAXIL CR [Suspect]
     Indication: DEPRESSION
     Dosage: 25MG PER DAY
     Route: 048

REACTIONS (6)
  - ANXIETY [None]
  - BACK PAIN [None]
  - CRYING [None]
  - DEPRESSION [None]
  - INSOMNIA [None]
  - PALPITATIONS [None]
